FAERS Safety Report 21863849 (Version 2)
Quarter: 2023Q1

REPORT INFORMATION
  Report Type: Spontaneous
  Country: US (occurrence: US)
  Receive Date: 20230116
  Receipt Date: 20230124
  Transmission Date: 20230417
  Serious: Yes (Other)
  Sender: FDA-Public Use
  Company Number: US-SUN PHARMACEUTICAL INDUSTRIES LTD-2023R1-373282

PATIENT
  Age: 58 Year
  Sex: Female

DRUGS (3)
  1. ACETAMINOPHEN [Suspect]
     Active Substance: ACETAMINOPHEN
     Indication: Pain
     Dosage: UNK
     Route: 048
  2. FOMEPIZOLE [Concomitant]
     Active Substance: FOMEPIZOLE
     Indication: Adjuvant therapy
     Dosage: 15 MILLIGRAM/KILOGRAM
     Route: 042
  3. FOMEPIZOLE [Concomitant]
     Active Substance: FOMEPIZOLE
     Dosage: 10 MILLIGRAM/KILOGRAM, BID(EVERY 12H)
     Route: 042

REACTIONS (4)
  - Acute kidney injury [Recovering/Resolving]
  - Hepatotoxicity [Recovering/Resolving]
  - Hepatorenal syndrome [Recovering/Resolving]
  - Renal tubular necrosis [Recovering/Resolving]
